FAERS Safety Report 17480808 (Version 1)
Quarter: 2020Q1

REPORT INFORMATION
  Report Type: Spontaneous
  Country: US (occurrence: US)
  Receive Date: 20200301
  Receipt Date: 20200301
  Transmission Date: 20200409
  Serious: No
  Sender: FDA-Public Use
  Company Number: US-SHIRE-US202007644

PATIENT

DRUGS (3)
  1. TRULANCE [Concomitant]
     Active Substance: PLECANATIDE
     Indication: PRODUCT USED FOR UNKNOWN INDICATION
  2. LINZESS [Concomitant]
     Active Substance: LINACLOTIDE
     Indication: PRODUCT USED FOR UNKNOWN INDICATION
  3. MOTEGRITY [Suspect]
     Active Substance: PRUCALOPRIDE SUCCINATE
     Indication: PRODUCT USED FOR UNKNOWN INDICATION
     Dosage: UNKNOWN
     Route: 065

REACTIONS (4)
  - Abdominal distension [Unknown]
  - Hyperhidrosis [Unknown]
  - Abdominal pain [Unknown]
  - Headache [Unknown]
